FAERS Safety Report 7636222-6 (Version None)
Quarter: 2011Q3

REPORT INFORMATION
  Report Type: 
  Country: None (occurrence: None)
  Receive Date: 20110726
  Receipt Date: 20110715
  Transmission Date: 20111222
  Serious: Yes (Hospitalization)
  Sender: FDA-Public Use
  Company Number: AU-JNJFOC-20110707053

PATIENT
  Sex: Female
  Weight: 118 kg

DRUGS (25)
  1. ENDEP [Concomitant]
     Route: 048
     Dates: start: 20040101
  2. PREDNISONE [Concomitant]
     Route: 048
     Dates: start: 20070821
  3. CLOTRIMAZOLE [Concomitant]
     Route: 061
     Dates: start: 20101213
  4. ESTRADIOL [Concomitant]
     Route: 048
  5. GOLIMUMAB [Suspect]
     Indication: RHEUMATOID ARTHRITIS
     Route: 058
     Dates: start: 20110321
  6. TEMAZE [Concomitant]
     Route: 048
     Dates: start: 20040101
  7. IRBESARTAN + HYDROCHLOROTHIAZIDE [Concomitant]
     Route: 048
     Dates: start: 20040101
  8. SPIRIVA [Concomitant]
     Route: 055
     Dates: start: 20070723
  9. RABEPRAZOLE SODIUM [Concomitant]
     Route: 048
     Dates: start: 20070905
  10. SILICA GEL [Concomitant]
     Route: 048
     Dates: start: 20080101
  11. SYMBICORT [Concomitant]
     Route: 055
     Dates: start: 20090301
  12. METHOTREXATE [Concomitant]
     Route: 048
     Dates: start: 20080519, end: 20090619
  13. METHOTREXATE [Suspect]
     Indication: RHEUMATOID ARTHRITIS
     Route: 048
     Dates: start: 20060529, end: 20080512
  14. FISH OIL [Concomitant]
     Route: 048
     Dates: start: 20080101
  15. PLAQUENIL [Concomitant]
     Route: 048
     Dates: start: 20101214
  16. SENNA [Concomitant]
     Route: 048
  17. CENTRUM MULTIVITAMINS [Concomitant]
     Route: 048
     Dates: start: 20080101
  18. FOLIC ACID [Concomitant]
     Route: 048
     Dates: start: 20080617
  19. WARFARIN SODIUM [Concomitant]
     Route: 048
     Dates: start: 20090820
  20. COLGOUT [Concomitant]
     Route: 048
     Dates: start: 20090724
  21. GLUCOSAMINE [Concomitant]
     Route: 048
     Dates: start: 20080101
  22. GOLIMUMAB [Suspect]
     Route: 058
     Dates: start: 20060619
  23. ACETAMINOPHEN [Concomitant]
     Route: 048
     Dates: start: 20020101
  24. PRISTIQ [Concomitant]
     Route: 048
     Dates: start: 20091113
  25. TRIAMCINOLONE [Concomitant]
     Route: 061
     Dates: start: 20101213

REACTIONS (1)
  - VULVAL CELLULITIS [None]
